FAERS Safety Report 4626821-8 (Version None)
Quarter: 2005Q2

REPORT INFORMATION
  Report Type: 
  Country: None (occurrence: None)
  Receive Date: 20050401
  Receipt Date: 20050401
  Transmission Date: 20051028
  Serious: Yes (Other)
  Sender: FDA-Public Use
  Company Number: None

PATIENT
  Age: 77 Year
  Sex: Male
  Weight: 80.2867 kg

DRUGS (9)
  1. CYTOXAN [Suspect]
     Indication: MESOTHELIOMA
     Dosage: PER BB-IND 2749
     Dates: start: 20050315
  2. GMCSF [Suspect]
  3. AUTOLOGOUS VACCINE [Suspect]
  4. LEVAQUIN [Concomitant]
  5. COREG [Concomitant]
  6. DILTIAZEM [Concomitant]
  7. COUMADIN [Concomitant]
  8. HYDROCHLOROTHIAZIDE [Concomitant]
  9. LANOXIN [Concomitant]

REACTIONS (4)
  - COUGH [None]
  - DYSPNOEA [None]
  - NEUTROPHIL COUNT DECREASED [None]
  - WHITE BLOOD CELL COUNT DECREASED [None]
